FAERS Safety Report 13647662 (Version 1)
Quarter: 2017Q2

REPORT INFORMATION
  Report Type: Spontaneous
  Country: US (occurrence: US)
  Receive Date: 20170613
  Receipt Date: 20170613
  Transmission Date: 20170830
  Serious: Yes (Hospitalization)
  Sender: FDA-Public Use
  Company Number: US-UNICHEM LABORATORIES LIMITED-UCM201706-000160

PATIENT
  Sex: Female

DRUGS (2)
  1. HYDROCHLOROTHIAZIDE. [Suspect]
     Active Substance: HYDROCHLOROTHIAZIDE
     Indication: HYPERTENSION
  2. CLOPIDOGREL [Suspect]
     Active Substance: CLOPIDOGREL BISULFATE

REACTIONS (7)
  - Acute kidney injury [Unknown]
  - Hyperkalaemia [Unknown]
  - Incontinence [Unknown]
  - Paralysis [Unknown]
  - Blood pressure fluctuation [Recovered/Resolved]
  - Hypotension [Unknown]
  - Gastrointestinal haemorrhage [Unknown]
